FAERS Safety Report 5790283-8 (Version None)
Quarter: 2008Q2

REPORT INFORMATION
  Report Type: 
  Country: None (occurrence: None)
  Receive Date: 20080626
  Receipt Date: 20080222
  Transmission Date: 20081010
  Serious: No
  Sender: FDA-Public Use
  Company Number: A0707727A

PATIENT
  Age: 31 Year
  Sex: Male

DRUGS (2)
  1. ALLI [Suspect]
     Dates: start: 20080118, end: 20080205
  2. LISINOPRIL [Concomitant]

REACTIONS (7)
  - ABDOMINAL PAIN UPPER [None]
  - ANXIETY [None]
  - DEHYDRATION [None]
  - HAEMATOCHEZIA [None]
  - PHARMACEUTICAL PRODUCT COMPLAINT [None]
  - RECTAL DISCHARGE [None]
  - STEATORRHOEA [None]
